FAERS Safety Report 8765956 (Version 1)
Quarter: 2012Q4

REPORT INFORMATION
  Report Type: 
  Country: SG (occurrence: SG)
  Receive Date: 20120904
  Receipt Date: 20120904
  Transmission Date: 20130627
  Serious: Yes (Other)
  Sender: FDA-Public Use
  Company Number: SG-WATSON-2012-14907

PATIENT
  Age: 20 Year
  Sex: Male

DRUGS (1)
  1. CABERGOLINE (UNKNOWN) [Suspect]
     Indication: PROLACTINOMA
     Dosage: 0.5 mg, 2/week
     Route: 065

REACTIONS (1)
  - Pituitary haemorrhage [Recovered/Resolved]
